FAERS Safety Report 9465601 (Version 1)
Quarter: 2013Q3

REPORT INFORMATION
  Report Type: Report from Study
  Country: CO (occurrence: CO)
  Receive Date: 20130820
  Receipt Date: 20130820
  Transmission Date: 20140515
  Serious: Yes (Hospitalization, Disabling)
  Sender: FDA-Public Use
  Company Number: CO-SANOFI-AVENTIS-2013SA080839

PATIENT
  Age: 67 Year
  Sex: Female

DRUGS (14)
  1. LANTUS [Suspect]
     Indication: DIABETES MELLITUS
     Dosage: DOSE:44 UNIT(S)
     Route: 058
     Dates: start: 2010
  2. APIDRA [Suspect]
     Indication: DIABETES MELLITUS
     Dosage: DOSE REPORTED AS 11U AM, 12 U MID DAY AND 11U PM
     Route: 058
     Dates: start: 2010
  3. CLONIDINE [Concomitant]
     Indication: HYPERTENSION
     Route: 048
  4. ISOSORBIDE DINITRATE [Concomitant]
     Indication: CORONARY ARTERY DISEASE
     Route: 048
  5. CARVEDILOL [Concomitant]
     Indication: CARDIAC FAILURE CONGESTIVE
     Route: 048
  6. DILTIAZEM [Concomitant]
     Indication: CORONARY ARTERY DISEASE
     Route: 048
  7. SPIRONOLACTONE [Concomitant]
     Indication: CARDIAC FAILURE CONGESTIVE
     Route: 048
  8. APROVEL [Concomitant]
     Indication: HYPERTENSION
     Route: 048
  9. CLOPIDOGREL [Concomitant]
     Indication: CORONARY ARTERY DISEASE
     Route: 048
     Dates: start: 2011
  10. FUROSEMIDE [Concomitant]
     Indication: CARDIAC FAILURE CONGESTIVE
     Route: 048
  11. LEVOTHYROXINE [Concomitant]
     Indication: HYPOTHYROIDISM
     Route: 048
  12. ALENDRONATE [Concomitant]
     Indication: OSTEOPOROSIS
     Route: 048
  13. ACETYLSALICYLIC ACID [Concomitant]
     Indication: CORONARY ARTERY DISEASE
     Route: 048
  14. FOLIC ACID [Concomitant]
     Route: 048

REACTIONS (3)
  - Vitreous haemorrhage [Recovered/Resolved]
  - Vision blurred [Recovered/Resolved]
  - Headache [Recovered/Resolved]
